FAERS Safety Report 12349237 (Version 3)
Quarter: 2016Q2

REPORT INFORMATION
  Report Type: Report from Study
  Country: US (occurrence: US)
  Receive Date: 20160509
  Receipt Date: 20160613
  Transmission Date: 20160815
  Serious: No
  Sender: FDA-Public Use
  Company Number: US-AMGEN-USASL2016056737

PATIENT
  Age: 57 Year
  Sex: Male

DRUGS (1)
  1. ENBREL [Suspect]
     Active Substance: ETANERCEPT
     Indication: RHEUMATOID ARTHRITIS
     Dosage: UNK
     Route: 065
     Dates: start: 2016

REACTIONS (8)
  - Injection site pain [Unknown]
  - Mobility decreased [Recovered/Resolved]
  - Pain [Unknown]
  - Therapeutic response decreased [Unknown]
  - Injection site bruising [Unknown]
  - Nausea [Unknown]
  - Musculoskeletal stiffness [Unknown]
  - Skin mass [Unknown]

NARRATIVE: CASE EVENT DATE: 2016
